FAERS Safety Report 9227730 (Version 1)
Quarter: 2013Q2

REPORT INFORMATION
  Report Type: Spontaneous
  Country: US (occurrence: US)
  Receive Date: 20130412
  Receipt Date: 20130412
  Transmission Date: 20140414
  Serious: Yes (Hospitalization, Other)
  Sender: FDA-Public Use
  Company Number: US-SANOFI-AVENTIS-2013SA037211

PATIENT
  Age: 86 Year
  Sex: Female

DRUGS (2)
  1. LANTUS SOLOSTAR [Suspect]
     Indication: TYPE 2 DIABETES MELLITUS
     Dosage: TAKEN FROM:3 YEARS AGO DOSE:45 UNIT(S)
     Route: 051
  2. SOLOSTAR [Suspect]
     Indication: TYPE 2 DIABETES MELLITUS
     Dosage: TAKEN FROM 3 YEARS AGO

REACTIONS (7)
  - Cardiac failure congestive [Unknown]
  - Lung disorder [Unknown]
  - Pulmonary congestion [Unknown]
  - Dyspnoea [Unknown]
  - Hypoacusis [Unknown]
  - Anxiety [Unknown]
  - Crying [Unknown]
